FAERS Safety Report 6143160-7 (Version None)
Quarter: 2009Q2

REPORT INFORMATION
  Report Type: 
  Country: None (occurrence: None)
  Receive Date: 20090403
  Receipt Date: 20090320
  Transmission Date: 20091009
  Serious: Yes (Hospitalization)
  Sender: FDA-Public Use
  Company Number: US-BIOGENIDEC-2009BI007247

PATIENT
  Age: 48 Year
  Sex: Female

DRUGS (1)
  1. TYSABRI [Suspect]
     Indication: MULTIPLE SCLEROSIS
     Route: 042
     Dates: start: 20061115, end: 20080102

REACTIONS (6)
  - COORDINATION ABNORMAL [None]
  - DEHYDRATION [None]
  - FATIGUE [None]
  - GALLBLADDER OPERATION [None]
  - KIDNEY INFECTION [None]
  - UTERINE LEIOMYOMA [None]
